FAERS Safety Report 7384796-5 (Version None)
Quarter: 2011Q1

REPORT INFORMATION
  Report Type: 
  Country: None (occurrence: None)
  Receive Date: 20110330
  Receipt Date: 20110328
  Transmission Date: 20110831
  Serious: Yes (Life-Threatening)
  Sender: FDA-Public Use
  Company Number: IT-ABBOTT-11P-083-0714770-00

PATIENT
  Age: 33 Year
  Sex: Male

DRUGS (3)
  1. DEPAKENE [Suspect]
     Indication: PRODUCT USED FOR UNKNOWN INDICATION
     Route: 048
     Dates: start: 20061024, end: 20110312
  2. REBIF [Suspect]
     Indication: MULTIPLE SCLEROSIS
     Route: 058
     Dates: start: 20080403, end: 20110308
  3. VENLAFAXINE [Suspect]
     Indication: PRODUCT USED FOR UNKNOWN INDICATION
     Route: 048
     Dates: start: 20030101, end: 20110312

REACTIONS (3)
  - HYDROCEPHALUS [None]
  - THROMBOCYTOPENIA [None]
  - CEREBRAL HAEMORRHAGE [None]
